FAERS Safety Report 4518108-9 (Version None)
Quarter: 2004Q4

REPORT INFORMATION
  Report Type: 
  Country: None (occurrence: None)
  Receive Date: 20041130
  Receipt Date: 20040624
  Transmission Date: 20050328
  Serious: Yes (Hospitalization)
  Sender: FDA-Public Use
  Company Number: 200483

PATIENT
  Age: 55 Year
  Sex: Female
  Weight: 72.5755 kg

DRUGS (10)
  1. AVONEX [Suspect]
     Indication: MULTIPLE SCLEROSIS
     Dosage: QIW; IM
     Route: 030
  2. LORTAB [Concomitant]
  3. KLONOPIN [Concomitant]
  4. PHENERGAN [Concomitant]
  5. TRAZODONE HCL [Concomitant]
  6. ZIAC [Concomitant]
  7. LEXAPRO [Concomitant]
  8. BEXTRA [Concomitant]
  9. ULTRAM [Concomitant]
  10. BACLOFEN [Concomitant]

REACTIONS (5)
  - CELLULITIS [None]
  - INFECTION [None]
  - SUBCUTANEOUS ABSCESS [None]
  - THERAPY NON-RESPONDER [None]
  - WOUND INFECTION STAPHYLOCOCCAL [None]
